FAERS Safety Report 19135072 (Version 5)
Quarter: 2022Q3

REPORT INFORMATION
  Report Type: Other
  Country: IT (occurrence: IT)
  Receive Date: 20210414
  Receipt Date: 20220922
  Transmission Date: 20221026
  Serious: Yes (Death)
  Sender: FDA-Public Use
  Company Number: IT-ROCHE-2796250

PATIENT
  Sex: Female

DRUGS (2)
  1. RITUXIMAB [Suspect]
     Active Substance: RITUXIMAB
     Indication: Thrombotic thrombocytopenic purpura
     Route: 065
  2. PREDNISONE [Suspect]
     Active Substance: PREDNISONE
     Indication: Thrombotic thrombocytopenic purpura
     Route: 065

REACTIONS (4)
  - Endocarditis staphylococcal [Fatal]
  - Cardiogenic shock [Fatal]
  - Septic cardiomyopathy [Fatal]
  - Off label use [Fatal]
